FAERS Safety Report 6295254-3 (Version None)
Quarter: 2009Q3

REPORT INFORMATION
  Report Type: 
  Country: None (occurrence: None)
  Receive Date: 20090730
  Receipt Date: 20090525
  Transmission Date: 20100115
  Serious: Yes (Other)
  Sender: FDA-Public Use
  Company Number: 2009008726

PATIENT
  Age: 39 Year
  Sex: Female

DRUGS (1)
  1. TRISENOX [Suspect]
     Indication: ACUTE PROMYELOCYTIC LEUKAEMIA
     Dosage: INFUSION

REACTIONS (2)
  - CARDIOTOXICITY [None]
  - DYSPNOEA [None]
